FAERS Safety Report 13084330 (Version 2)
Quarter: 2017Q1

REPORT INFORMATION
  Report Type: Report from Study
  Country: KR (occurrence: KR)
  Receive Date: 20170104
  Receipt Date: 20170109
  Transmission Date: 20170428
  Serious: Yes (Hospitalization)
  Sender: FDA-Public Use
  Company Number: KR-GLAXOSMITHKLINE-KR2016GSK193061

PATIENT
  Age: 81 Year
  Sex: Female
  Weight: 36 kg

DRUGS (9)
  1. ALBIS [Concomitant]
     Active Substance: BISMUTH SUBCITRATE\RANITIDINE HYDROCHLORIDE\SUCRALFATE
     Indication: PROPHYLAXIS
     Dosage: UNK
     Dates: start: 20160504
  2. ERDOS [Concomitant]
     Indication: CHRONIC OBSTRUCTIVE PULMONARY DISEASE
     Dosage: 300 MG, BID
     Dates: start: 20160823
  3. ASPIRIN. [Concomitant]
     Active Substance: ASPIRIN
     Indication: CAROTID ARTERY OCCLUSION
     Dosage: 100 MG, 1D
     Dates: start: 20130617
  4. ASIMA [Concomitant]
     Indication: CHRONIC OBSTRUCTIVE PULMONARY DISEASE
     Dosage: 400 MG, UNK
     Dates: start: 20160812
  5. PLATLESS [Concomitant]
     Indication: CAROTID ARTERY OCCLUSION
     Dosage: 75 MG, UNK
     Dates: start: 20160113
  6. CRESTOR [Concomitant]
     Active Substance: ROSUVASTATIN CALCIUM
     Indication: ANGINA PECTORIS
     Dosage: 20 MG, UNK
     Dates: start: 20160504
  7. UMECLIDINIUM BR+VILANTEROL TRIFENATATE [Suspect]
     Active Substance: UMECLIDINIUM BROMIDE\VILANTEROL TRIFENATATE
     Indication: CHRONIC OBSTRUCTIVE PULMONARY DISEASE
     Dosage: 25 MG, UNK
     Dates: start: 20160629
  8. ATACAND PLUS [Concomitant]
     Active Substance: CANDESARTAN CILEXETIL\HYDROCHLOROTHIAZIDE
     Indication: HYPERTENSION
  9. CINALONG [Concomitant]
     Indication: HYPERTENSION
     Dosage: 10 MG, BID
     Dates: start: 20160113

REACTIONS (1)
  - Haematoma [Recovered/Resolved]

NARRATIVE: CASE EVENT DATE: 20161003
